FAERS Safety Report 19815006 (Version 1)
Quarter: 2021Q3

REPORT INFORMATION
  Report Type: Spontaneous
  Country: US (occurrence: US)
  Receive Date: 20210907
  Receipt Date: 20210907
  Transmission Date: 20211014
  Serious: No
  Sender: FDA-Public Use
  Company Number: None

PATIENT
  Age: 25 Year
  Sex: Female
  Weight: 100 kg

DRUGS (2)
  1. OXCARBAZEPINE (OXCARBAZEPINE 150MG TAB) [Suspect]
     Active Substance: OXCARBAZEPINE
     Indication: BIPOLAR DISORDER
     Dates: start: 20210504, end: 20210603
  2. OXCARBAZEPINE (OXCARBAZEPINE 150MG TAB) [Suspect]
     Active Substance: OXCARBAZEPINE
     Indication: MANIA
     Dates: start: 20210504, end: 20210603

REACTIONS (4)
  - Rash [None]
  - Pruritus [None]
  - Headache [None]
  - Fatigue [None]

NARRATIVE: CASE EVENT DATE: 20210525
